FAERS Safety Report 16427534 (Version 1)
Quarter: 2019Q2

REPORT INFORMATION
  Report Type: Spontaneous
  Country: GB (occurrence: GB)
  Receive Date: 20190613
  Receipt Date: 20190613
  Transmission Date: 20190711
  Serious: Yes (Hospitalization)
  Sender: FDA-Public Use
  Company Number: GB-TEVA-2019-GB-1061573

PATIENT
  Age: 51 Year
  Sex: Female

DRUGS (7)
  1. NAPROXEN. [Suspect]
     Active Substance: NAPROXEN
     Dosage: 1000 MILLIGRAM FOR EVERY 1 DAYS
  2. VENTOLIN [Concomitant]
     Active Substance: ALBUTEROL SULFATE
     Dosage: 200 MICROGRAMS PUFFS.
  3. ALENDRONIC ACID [Concomitant]
     Active Substance: ALENDRONIC ACID
     Dosage: 70 MILLIGRAM FOR EVERY 1 WEEK ON SAME DAY EACH WEEK.
  4. ANGELIQ [Concomitant]
     Active Substance: DROSPIRENONE\ESTRADIOL
     Dosage: 1MG/2MG
  5. OMEPRAZOLE. [Concomitant]
     Active Substance: OMEPRAZOLE
     Dosage: 20 MILLIGRAM FOR EVERY 1 DAYS
  6. DUORESP SPIROMAX [Concomitant]
     Active Substance: BUDESONIDE\FORMOTEROL
     Dosage: 320MICROGRAMS/DOSE / 9MICROGRAMS/DOSE
     Route: 055
  7. CALCIUM AND COLECALCIFEROL [Concomitant]
     Dosage: COLECALCIFEROL?400UNIT / CALCIUM CARBONATE 1.5G

REACTIONS (2)
  - Haemoptysis [Unknown]
  - Upper gastrointestinal haemorrhage [Recovered/Resolved]
